FAERS Safety Report 4719003-2 (Version None)
Quarter: 2005Q3

REPORT INFORMATION
  Report Type: 
  Country: None (occurrence: None)
  Receive Date: 20050719
  Receipt Date: 20050704
  Transmission Date: 20060218
  Serious: Yes (Hospitalization)
  Sender: FDA-Public Use
  Company Number: JP_050606789

PATIENT
  Age: 70 Year
  Sex: Female
  Weight: 62 kg

DRUGS (5)
  1. EVISTA [Suspect]
     Indication: OSTEOPOROSIS
     Dosage: 60 MG/1 DAY
     Dates: start: 20050323, end: 20050408
  2. ASPARA-CA          (ASPARTATE CALCIUM) [Concomitant]
  3. MOHRUS       (KETOPROFEN) [Concomitant]
  4. HYALURONATE SODIUM [Concomitant]
  5. ROCALTROL [Concomitant]

REACTIONS (13)
  - ANOREXIA [None]
  - ATRIAL FIBRILLATION [None]
  - CARDIAC FAILURE CHRONIC [None]
  - CHEST X-RAY ABNORMAL [None]
  - CONDITION AGGRAVATED [None]
  - GASTRITIS [None]
  - HEAD DISCOMFORT [None]
  - MALAISE [None]
  - NAUSEA [None]
  - PALPITATIONS [None]
  - PLEURAL EFFUSION [None]
  - PO2 DECREASED [None]
  - VOMITING [None]
